FAERS Safety Report 4681051-9 (Version None)
Quarter: 2005Q2

REPORT INFORMATION
  Report Type: 
  Country: None (occurrence: None)
  Receive Date: 20050601
  Receipt Date: 20050519
  Transmission Date: 20051028
  Serious: Yes (Other)
  Sender: FDA-Public Use
  Company Number: 2004214588US

PATIENT
  Age: 50 Year
  Sex: Male

DRUGS (6)
  1. CELEBREX [Suspect]
     Indication: OSTEOARTHRITIS
     Dosage: 400 MG (200 MG, 2 IN 1 D), ORAL
     Route: 048
     Dates: start: 20031101
  2. MORPHINE [Concomitant]
  3. XANAX [Concomitant]
  4. TRAZODONE HCL [Concomitant]
  5. ROFECOXIB [Concomitant]
  6. ACETYLSALICYLIC ACID SRT [Concomitant]

REACTIONS (16)
  - ANXIETY DISORDER [None]
  - BILIARY DILATATION [None]
  - CHOLELITHIASIS [None]
  - CONDITION AGGRAVATED [None]
  - DEPRESSION [None]
  - EYE PAIN [None]
  - GASTROOESOPHAGEAL REFLUX DISEASE [None]
  - HYPERSENSITIVITY [None]
  - HYPOKINESIA [None]
  - LARGE INTESTINE PERFORATION [None]
  - LETHARGY [None]
  - PNEUMONIA PRIMARY ATYPICAL [None]
  - TINNITUS [None]
  - TREATMENT NONCOMPLIANCE [None]
  - ULCER [None]
  - VISION BLURRED [None]
